FAERS Safety Report 25395968 (Version 1)
Quarter: 2025Q2

REPORT INFORMATION
  Report Type: Spontaneous
  Country: US (occurrence: None)
  Receive Date: 20250603
  Receipt Date: 20250603
  Transmission Date: 20250716
  Serious: No
  Sender: FDA-CTU
  Company Number: None

PATIENT
  Age: 21 Year
  Sex: Female
  Weight: 48.6 kg

DRUGS (2)
  1. ESCITALOPRAM [Suspect]
     Active Substance: ESCITALOPRAM OXALATE
     Indication: Generalised anxiety disorder
     Dates: start: 20211215, end: 20240405
  2. ZOLOFT [Suspect]
     Active Substance: SERTRALINE HYDROCHLORIDE

REACTIONS (38)
  - Adverse drug reaction [None]
  - Panic attack [None]
  - Flushing [None]
  - Mydriasis [None]
  - Blunted affect [None]
  - Headache [None]
  - Muscle spasms [None]
  - Muscle twitching [None]
  - Dry mouth [None]
  - Photosensitivity reaction [None]
  - Eye movement disorder [None]
  - Disturbance in attention [None]
  - Insomnia [None]
  - Hallucination, auditory [None]
  - Photopsia [None]
  - Temperature regulation disorder [None]
  - Dyspnoea [None]
  - Dyspnoea [None]
  - Disturbance in sexual arousal [None]
  - Tachycardia [None]
  - Paraesthesia [None]
  - Pain [None]
  - Urticaria [None]
  - Brain fog [None]
  - Crying [None]
  - Tremor [None]
  - Chills [None]
  - Flat affect [None]
  - Depression [None]
  - Feeling abnormal [None]
  - Suicidal ideation [None]
  - Withdrawal syndrome [None]
  - Food allergy [None]
  - Pruritus [None]
  - Upper-airway cough syndrome [None]
  - Motion sickness [None]
  - Hypersensitivity [None]
  - Multiple drug hypersensitivity [None]
